FAERS Safety Report 11491978 (Version 1)
Quarter: 2015Q3

REPORT INFORMATION
  Report Type: Report from Study
  Country: RO (occurrence: RO)
  Receive Date: 20150910
  Receipt Date: 20150910
  Transmission Date: 20151125
  Serious: Yes (Hospitalization)
  Sender: FDA-Public Use
  Company Number: RO-ABBVIE-15P-135-1459325-00

PATIENT
  Sex: Female

DRUGS (2)
  1. DUODOPA [Suspect]
     Active Substance: CARBIDOPA\LEVODOPA
     Indication: PARKINSON^S DISEASE
     Dosage: 16/24 MD - 8.7 ML CR - 2.4 ML, ED - 1.2 ML
     Route: 050
     Dates: start: 20141125
  2. SEROQUEL [Concomitant]
     Active Substance: QUETIAPINE FUMARATE
     Indication: PRODUCT USED FOR UNKNOWN INDICATION
     Dosage: QPM

REACTIONS (5)
  - Apathy [Unknown]
  - Crying [Unknown]
  - Dementia [Unknown]
  - Diet refusal [Unknown]
  - Social problem [Unknown]

NARRATIVE: CASE EVENT DATE: 20150903
